FAERS Safety Report 12758633 (Version 2)
Quarter: 2017Q3

REPORT INFORMATION
  Report Type: Spontaneous
  Country: US (occurrence: US)
  Receive Date: 20160919
  Receipt Date: 20170914
  Transmission Date: 20171127
  Serious: No
  Sender: FDA-Public Use
  Company Number: US-ASTELLAS-2015US044552

PATIENT
  Age: 71 Year
  Sex: Male

DRUGS (3)
  1. XTANDI [Suspect]
     Active Substance: ENZALUTAMIDE
     Route: 048
     Dates: start: 201706
  2. XTANDI [Suspect]
     Active Substance: ENZALUTAMIDE
     Indication: PROSTATE CANCER
     Route: 048
     Dates: start: 20151020, end: 201706
  3. LISINOPRIL. [Concomitant]
     Active Substance: LISINOPRIL
     Indication: PRODUCT USED FOR UNKNOWN INDICATION
     Dosage: UNK UNK, UNKNOWN FREQ.
     Route: 065

REACTIONS (10)
  - Bladder disorder [Unknown]
  - Fatigue [Unknown]
  - Dizziness [Unknown]
  - Drug dose omission [Unknown]
  - Memory impairment [Unknown]
  - Malaise [Unknown]
  - Blood pressure increased [Unknown]
  - Fatigue [Unknown]
  - Influenza like illness [Unknown]
  - Sluggishness [Unknown]

NARRATIVE: CASE EVENT DATE: 20160715
